FAERS Safety Report 15617338 (Version 2)
Quarter: 2019Q1

REPORT INFORMATION
  Report Type: Spontaneous
  Country: US (occurrence: US)
  Receive Date: 20181114
  Receipt Date: 20190104
  Transmission Date: 20190417
  Serious: Yes (Other)
  Sender: FDA-Public Use
  Company Number: PHEH2018US047315

PATIENT
  Sex: Male

DRUGS (1)
  1. CIPRODEX [Suspect]
     Active Substance: CIPROFLOXACIN HYDROCHLORIDE\DEXAMETHASONE
     Indication: EAR INFECTION
     Dosage: 4 GTT, BID
     Route: 001

REACTIONS (7)
  - Ear discomfort [Not Recovered/Not Resolved]
  - Inner ear inflammation [Unknown]
  - Paradoxical pain [Unknown]
  - External ear inflammation [Unknown]
  - Hypoacusis [Unknown]
  - Hypersensitivity [Unknown]
  - Ear swelling [Unknown]
